FAERS Safety Report 22366167 (Version 1)
Quarter: 2023Q2

REPORT INFORMATION
  Report Type: Other
  Country: ES (occurrence: ES)
  Receive Date: 20230525
  Receipt Date: 20230525
  Transmission Date: 20230722
  Serious: Yes (Hospitalization, Other)
  Sender: FDA-Public Use
  Company Number: None

PATIENT
  Age: 59 Year
  Sex: Male
  Weight: 96 kg

DRUGS (4)
  1. OMEGA-3-ACID ETHYL ESTERS [Suspect]
     Active Substance: OMEGA-3-ACID ETHYL ESTERS
     Indication: Hypertriglyceridaemia
     Dosage: UNK
     Route: 065
  2. MORPHINE SULFATE [Suspect]
     Active Substance: MORPHINE SULFATE
     Indication: Product used for unknown indication
     Dosage: UNK
     Route: 065
     Dates: start: 20220119
  3. INSULIN GLARGINE [Suspect]
     Active Substance: INSULIN GLARGINE
     Indication: Type 2 diabetes mellitus
     Dosage: 40 INTERNATIONAL UNIT (40 IU)
     Route: 058
     Dates: start: 2019
  4. NOVORAPID [Concomitant]
     Active Substance: INSULIN ASPART
     Indication: Type 2 diabetes mellitus
     Dosage: 10 INTERNATIONAL UNIT (10 IU)
     Route: 058

REACTIONS (10)
  - Arthritis bacterial [Unknown]
  - Blood glucose increased [Unknown]
  - Urinary tract infection [Not Recovered/Not Resolved]
  - Discomfort [Recovered/Resolved]
  - Dehydration [Not Recovered/Not Resolved]
  - Renal disorder [Recovered/Resolved]
  - Prostatic disorder [Not Recovered/Not Resolved]
  - Dysuria [Not Recovered/Not Resolved]
  - Blood pressure decreased [Recovered/Resolved]
  - Diarrhoea [Recovered/Resolved]

NARRATIVE: CASE EVENT DATE: 20220919
